FAERS Safety Report 6538923-X (Version None)
Quarter: 2010Q1

REPORT INFORMATION
  Report Type: 
  Country: None (occurrence: None)
  Receive Date: 20100115
  Receipt Date: 20100111
  Transmission Date: 20100710
  Serious: Yes (Life-Threatening, Hospitalization, Other)
  Sender: FDA-Public Use
  Company Number: US-ELI_LILLY_AND_COMPANY-US201001001601

PATIENT
  Sex: Female
  Weight: 66 kg

DRUGS (14)
  1. GEMCITABINE HCL [Suspect]
     Indication: PANCREATIC CARCINOMA
     Dosage: 1000 MG/M2, OTHER
     Route: 042
     Dates: start: 20081229, end: 20090817
  2. BLINDED THERAPY [Suspect]
     Indication: PANCREATIC CARCINOMA
     Dosage: 5 MG/KG, OTHER
     Route: 042
     Dates: start: 20081229, end: 20090821
  3. DARVON [Concomitant]
     Indication: PAIN
     Dosage: 650 MG, EVERY 4 HRS
     Route: 048
     Dates: start: 20080112
  4. NITROGLYCERIN [Concomitant]
     Indication: CORONARY ARTERY DISEASE
     Dosage: 0.4 MG, AS NEEDED
     Route: 060
     Dates: start: 20060101
  5. ISOSORBIDE [Concomitant]
     Indication: CORONARY ARTERY DISEASE
     Dosage: 30 MG, DAILY (1/D)
     Route: 048
     Dates: start: 20060101
  6. METOPROLOL [Concomitant]
     Indication: HYPERTENSION
     Dosage: 25 MG, DAILY (1/D)
     Route: 048
     Dates: start: 20060101
  7. SIMVASTATIN [Concomitant]
     Indication: HYPERCHOLESTEROLAEMIA
     Dosage: 20 MG, DAILY (1/D)
     Route: 048
     Dates: start: 20060101
  8. OMEPRAZOLE [Concomitant]
     Indication: ABDOMINAL PAIN
     Dosage: 20 MG, DAILY (1/D)
     Route: 048
     Dates: start: 20081201
  9. IMDUR [Concomitant]
     Indication: HYPERTENSION
     Dosage: 30 MG, DAILY (1/D)
     Route: 048
     Dates: start: 20060101
  10. DARVOCET [Concomitant]
     Indication: CANCER PAIN
     Route: 048
     Dates: start: 20081201
  11. ZOFRAN [Concomitant]
     Indication: PREMEDICATION
     Dosage: 32 MG, UNKNOWN
     Route: 042
     Dates: start: 20081229
  12. BENADRYL [Concomitant]
     Indication: PREMEDICATION
     Dosage: 25 MG, UNKNOWN
     Route: 042
     Dates: start: 20081229
  13. DECADRON [Concomitant]
     Indication: PREMEDICATION
     Dosage: 12 MG, UNKNOWN
     Route: 042
     Dates: start: 20081229
  14. TYLENOL (CAPLET) [Concomitant]
     Indication: PREMEDICATION
     Dosage: 650 MG, UNKNOWN
     Route: 042
     Dates: start: 20081229

REACTIONS (4)
  - ASTHENIA [None]
  - PLATELET COUNT DECREASED [None]
  - PLEURAL EFFUSION [None]
  - RESPIRATORY FAILURE [None]
